FAERS Safety Report 11354795 (Version 1)
Quarter: 2015Q3

REPORT INFORMATION
  Report Type: Spontaneous
  Country: US (occurrence: US)
  Receive Date: 20150807
  Receipt Date: 20150807
  Transmission Date: 20151125
  Serious: No
  Sender: FDA-Public Use
  Company Number: US-JNJFOC-20150420584

PATIENT
  Sex: Female
  Weight: 63.5 kg

DRUGS (17)
  1. VITAMIN C [Concomitant]
     Active Substance: ASCORBIC ACID
     Indication: ROUTINE HEALTH MAINTENANCE
     Route: 065
  2. MAGNESIUM [Concomitant]
     Active Substance: MAGNESIUM
     Indication: ROUTINE HEALTH MAINTENANCE
     Route: 065
  3. COCONUT OIL [Concomitant]
     Active Substance: COCONUT OIL
     Indication: MEMORY IMPAIRMENT
     Route: 065
  4. LUTEIN [Concomitant]
     Active Substance: LUTEIN
     Indication: EYE DISORDER
     Route: 065
  5. CENTURY SENIOR MULTIVITAMIN [Concomitant]
     Indication: ROUTINE HEALTH MAINTENANCE
     Route: 065
  6. WOMENS ROGAINE [Suspect]
     Active Substance: MINOXIDIL
     Route: 061
  7. VITAMIN D3 [Concomitant]
     Active Substance: CHOLECALCIFEROL
     Indication: ROUTINE HEALTH MAINTENANCE
     Route: 065
  8. LISINOPRIL. [Concomitant]
     Active Substance: LISINOPRIL
     Indication: BLOOD PRESSURE MEASUREMENT
     Route: 065
  9. ESTRADIOL/NORETHINDRONE ACETATE [Concomitant]
     Active Substance: ESTRADIOL\NORETHINDRONE ACETATE
     Indication: ROUTINE HEALTH MAINTENANCE
     Route: 065
  10. BILBERRY EXTRACT [Concomitant]
     Indication: EYE DISORDER
     Route: 065
  11. KRILL OIL [Concomitant]
     Active Substance: DIETARY SUPPLEMENT
     Indication: CARDIAC DISORDER
     Route: 065
  12. GLUCOSAMINE / CHONDROITIN [Concomitant]
     Indication: ARTHROPATHY
     Route: 065
  13. METOPROLOL [Concomitant]
     Active Substance: METOPROLOL
     Indication: HEART RATE IRREGULAR
     Route: 065
  14. BIOTIN [Concomitant]
     Active Substance: BIOTIN
     Indication: ALOPECIA
     Route: 065
  15. WOMENS ROGAINE [Suspect]
     Active Substance: MINOXIDIL
     Indication: ALOPECIA
     Dosage: TWICE A DAY EVERY OTHER DAY
     Route: 061
  16. L THYROXIN [Concomitant]
     Active Substance: LEVOTHYROXINE SODIUM
     Indication: THYROID DISORDER
     Route: 065
  17. NEUROCAPS E [Concomitant]
     Indication: NERVOUS SYSTEM DISORDER
     Route: 065

REACTIONS (3)
  - Incorrect dosage administered [Unknown]
  - Alopecia [Recovering/Resolving]
  - Drug ineffective [Unknown]
